FAERS Safety Report 14564290 (Version 1)
Quarter: 2018Q1

REPORT INFORMATION
  Report Type: Spontaneous
  Country: US (occurrence: US)
  Receive Date: 20180222
  Receipt Date: 20180222
  Transmission Date: 20180509
  Serious: No
  Sender: FDA-Public Use
  Company Number: US-GLAXOSMITHKLINE-US2018026254

PATIENT
  Age: 71 Year
  Sex: Female

DRUGS (7)
  1. ROSUVASTATIN. [Suspect]
     Active Substance: ROSUVASTATIN
     Indication: BLOOD CHOLESTEROL INCREASED
     Dosage: 10 MG, QD
     Route: 048
     Dates: start: 20171109, end: 20171119
  2. COQ10 [Concomitant]
     Active Substance: UBIDECARENONE
  3. ANORO ELLIPTA [Suspect]
     Active Substance: UMECLIDINIUM BROMIDE\VILANTEROL TRIFENATATE
     Indication: DYSPNOEA
     Dosage: 1 PUFF(S), QD
     Route: 055
     Dates: start: 201702
  4. GABAPENTIN. [Suspect]
     Active Substance: GABAPENTIN
     Indication: NERVOUS SYSTEM DISORDER
     Dosage: 300 MG, TID
     Route: 048
     Dates: start: 20180117, end: 20180120
  5. PANTOPRAZOLE [Concomitant]
     Active Substance: PANTOPRAZOLE
  6. RANITIDINE. [Concomitant]
     Active Substance: RANITIDINE
  7. BISOPROLOL + HYDROCHLOROTHIAZIDE [Concomitant]

REACTIONS (8)
  - Muscle disorder [Recovered/Resolved]
  - Musculoskeletal stiffness [Unknown]
  - Fall [Unknown]
  - Movement disorder [Recovered/Resolved]
  - Muscular weakness [Not Recovered/Not Resolved]
  - Vertigo [Unknown]
  - Feeling drunk [Unknown]
  - Dizziness [Not Recovered/Not Resolved]

NARRATIVE: CASE EVENT DATE: 20170916
